FAERS Safety Report 14206640 (Version 1)
Quarter: 2017Q4

REPORT INFORMATION
  Report Type: Spontaneous
  Country: US (occurrence: US)
  Receive Date: 20171120
  Receipt Date: 20171120
  Transmission Date: 20180321
  Serious: No
  Sender: FDA-Public Use
  Company Number: PHEH2017US036747

PATIENT
  Sex: Female
  Weight: 102.95 kg

DRUGS (2)
  1. AMIODARONE HYDROCHLORIDE. [Suspect]
     Active Substance: AMIODARONE HYDROCHLORIDE
     Indication: HEART RATE IRREGULAR
     Dosage: ONE TABLET BY MOUTH ONE DAY AND HALF TABLET BY MOUTH THE NEXT DAY
     Route: 048
  2. AMIODARONE HYDROCHLORIDE. [Suspect]
     Active Substance: AMIODARONE HYDROCHLORIDE
     Indication: ATRIAL FIBRILLATION

REACTIONS (11)
  - Swelling [Not Recovered/Not Resolved]
  - Erythema [Not Recovered/Not Resolved]
  - Thyroid disorder [Not Recovered/Not Resolved]
  - Alopecia [Not Recovered/Not Resolved]
  - Skin discolouration [Not Recovered/Not Resolved]
  - Rash macular [Not Recovered/Not Resolved]
  - Muscular weakness [Not Recovered/Not Resolved]
  - Gait disturbance [Not Recovered/Not Resolved]
  - Goitre [Not Recovered/Not Resolved]
  - Temperature intolerance [Not Recovered/Not Resolved]
  - Tremor [Not Recovered/Not Resolved]
